FAERS Safety Report 8479881-0 (Version None)
Quarter: 2012Q2

REPORT INFORMATION
  Report Type: 
  Country: None (occurrence: None)
  Receive Date: 20120629
  Receipt Date: 20120625
  Transmission Date: 20120825
  Serious: Yes (Life-Threatening, Congenital Anomaly, Other)
  Sender: FDA-Public Use
  Company Number: DE-ASTRAZENECA-2012SE42538

PATIENT
  Sex: Male
  Weight: 2.2 kg

DRUGS (8)
  1. INTRATECT [Suspect]
     Indication: IDIOPATHIC THROMBOCYTOPENIC PURPURA
     Route: 064
     Dates: start: 20100312, end: 20100314
  2. PREDNISONE TAB [Concomitant]
     Indication: IDIOPATHIC THROMBOCYTOPENIC PURPURA
     Route: 064
     Dates: start: 20091112, end: 20091116
  3. PROTOPHANE [Concomitant]
     Indication: GESTATIONAL DIABETES
     Dosage: 20 IE/D/ SINCE MARCH, THE 4TH 20 IE/D (10-0-10), BEFORE THAT 6-0-0 IE/D
     Route: 064
     Dates: start: 20100217, end: 20100316
  4. PREDNISONE TAB [Concomitant]
     Indication: IDIOPATHIC THROMBOCYTOPENIC PURPURA
     Dosage: 40 MG/D / CHANGING DOSAGE BETWEEN 20, 35 OR 40 MG/D.
     Route: 064
     Dates: start: 20091215, end: 20100316
  5. OMEPRAZOLE [Suspect]
     Indication: GASTRITIS PROPHYLAXIS
     Route: 064
  6. RITUXIMAB [Suspect]
     Indication: IDIOPATHIC THROMBOCYTOPENIC PURPURA
     Dosage: ON JAN. THE 24TH 800 MG, THE OTHER 3 TIMES 700 MG.
     Route: 064
     Dates: start: 20100124, end: 20100215
  7. FOLSAURE [Concomitant]
     Route: 064
  8. DEXAMETHASONE [Concomitant]
     Indication: IDIOPATHIC THROMBOCYTOPENIC PURPURA
     Route: 064
     Dates: start: 20100312, end: 20100314

REACTIONS (3)
  - VENTRICULAR SEPTAL DEFECT [None]
  - B-LYMPHOCYTE COUNT DECREASED [None]
  - NEONATAL RESPIRATORY DISTRESS SYNDROME [None]
